FAERS Safety Report 25413665 (Version 1)
Quarter: 2025Q2

REPORT INFORMATION
  Report Type: Spontaneous
  Country: US (occurrence: None)
  Receive Date: 20250607
  Receipt Date: 20250607
  Transmission Date: 20250716
  Serious: Yes (Life-Threatening)
  Sender: FDA-CTU
  Company Number: None

PATIENT
  Sex: Female

DRUGS (2)
  1. ZEPBOUND [Suspect]
     Active Substance: TIRZEPATIDE
     Indication: Body mass index abnormal
     Dates: start: 20250518
  2. Skin hair and nail supplement (Natures Bounty) [Concomitant]

REACTIONS (2)
  - Gastrooesophageal reflux disease [None]
  - Middle insomnia [None]

NARRATIVE: CASE EVENT DATE: 20250518
